FAERS Safety Report 4280464-7 (Version None)
Quarter: 2004Q1

REPORT INFORMATION
  Report Type: 
  Country: None (occurrence: None)
  Receive Date: 20040128
  Receipt Date: 20040114
  Transmission Date: 20041129
  Serious: Yes (Other)
  Sender: FDA-Public Use
  Company Number: ZA-SHR-04-019972

PATIENT
  Sex: Male

DRUGS (1)
  1. FLUDARABINE COMBINATION (FLUDARABINE PHOSPHATE) [Suspect]
     Dosage: 1 CYCLE

REACTIONS (1)
  - ERYTHEMA MULTIFORME [None]
